FAERS Safety Report 7671068-4 (Version None)
Quarter: 2011Q3

REPORT INFORMATION
  Report Type: 
  Country: None (occurrence: None)
  Receive Date: 20110803
  Receipt Date: 20110719
  Transmission Date: 20111222
  Serious: Yes (Death)
  Sender: FDA-Public Use
  Company Number: 2011-305

PATIENT
  Age: 93 Year
  Sex: Female

DRUGS (5)
  1. IPRATROPIUM BROMIDE AND ALBUTEROL SULFATE (IPRATROPIUM BROMIDE, SALBUT [Concomitant]
  2. FAZACLO ODT [Suspect]
     Dosage: 25 MG, QD, ORAL
     Route: 048
     Dates: start: 20110515, end: 20110719
  3. FUROSEMIDE [Concomitant]
  4. EXELON [Concomitant]
  5. GEODON [Concomitant]

REACTIONS (1)
  - DEATH [None]
